FAERS Safety Report 19154481 (Version 2)
Quarter: 2021Q2

REPORT INFORMATION
  Report Type: Spontaneous
  Country: ID (occurrence: ID)
  Receive Date: 20210419
  Receipt Date: 20210616
  Transmission Date: 20210717
  Serious: Yes (Other)
  Sender: FDA-Public Use
  Company Number: NVSC2021ID080186

PATIENT
  Age: 78 Year
  Sex: Female

DRUGS (1)
  1. KRYXANA [Suspect]
     Active Substance: RIBOCICLIB
     Indication: HER2 NEGATIVE BREAST CANCER
     Dosage: UNK
     Route: 065

REACTIONS (5)
  - Haemoglobin abnormal [Unknown]
  - Fatigue [Unknown]
  - Neutropenia [Unknown]
  - Asthenia [Unknown]
  - Gait inability [Unknown]
